FAERS Safety Report 6538295-0 (Version None)
Quarter: 2010Q1

REPORT INFORMATION
  Report Type: 
  Country: None (occurrence: None)
  Receive Date: 20100114
  Receipt Date: 20100104
  Transmission Date: 20100710
  Serious: No
  Sender: FDA-Public Use
  Company Number: US-B.I. PHARMACEUTICALS,INC./RIDGEFIELD-2010-BP-00180BP

PATIENT

DRUGS (2)
  1. VIRAMUNE [Suspect]
  2. TRUVADA [Suspect]

REACTIONS (2)
  - RASH [None]
  - RASH GENERALISED [None]
